FAERS Safety Report 6179781-5 (Version None)
Quarter: 2009Q2

REPORT INFORMATION
  Report Type: 
  Country: None (occurrence: None)
  Receive Date: 20090505
  Receipt Date: 20090423
  Transmission Date: 20091009
  Serious: Yes (Other)
  Sender: FDA-Public Use
  Company Number: JP-PFIZER INC-2009204249

PATIENT

DRUGS (4)
  1. ZITHROMAX [Suspect]
     Dosage: UNK
     Route: 048
     Dates: start: 20090413
  2. ALIMEZINE [Concomitant]
     Dosage: UNK
     Route: 048
     Dates: start: 20090413
  3. ASVERIN [Concomitant]
     Dosage: UNK
     Route: 048
     Dates: start: 20090413
  4. MUCODYNE [Concomitant]
     Dosage: UNK
     Route: 048
     Dates: start: 20090413

REACTIONS (3)
  - AGGRESSION [None]
  - DELIRIUM [None]
  - DREAMY STATE [None]
